FAERS Safety Report 6411751-1 (Version None)
Quarter: 2009Q4

REPORT INFORMATION
  Report Type: 
  Country: None (occurrence: None)
  Receive Date: 20091020
  Receipt Date: 20091007
  Transmission Date: 20100525
  Serious: Yes (Hospitalization)
  Sender: FDA-Public Use
  Company Number: 2009AC000184

PATIENT
  Age: 65 Year
  Sex: Female

DRUGS (39)
  1. DIGOXIN [Suspect]
     Dosage: 0.25 MG; QD; PO
     Route: 048
  2. AGGRENOX [Concomitant]
  3. LASIX [Concomitant]
  4. POTASSIUM CHLORIDE [Concomitant]
  5. VASOTEC [Concomitant]
  6. ZOCOR [Concomitant]
  7. PRILOSEC [Concomitant]
  8. COREG [Concomitant]
  9. ACTOS [Concomitant]
  10. ALBUTEROL [Concomitant]
  11. CELEXA [Concomitant]
  12. FISH OIL [Concomitant]
  13. METAMUCIL [Concomitant]
  14. MULTI-VITAMIN [Concomitant]
  15. PROZAC [Concomitant]
  16. LEVAQUIN [Concomitant]
  17. DETROL [Concomitant]
  18. ENALAPRIL [Concomitant]
  19. WARFARIN SODIUM [Concomitant]
  20. ASPIRIN [Concomitant]
  21. NEXIUM [Concomitant]
  22. TRICOR [Concomitant]
  23. HYDROCODONE [Concomitant]
  24. CARVEDILOL [Concomitant]
  25. SIMVASTATIN [Concomitant]
  26. OMEPRAZOLE [Concomitant]
  27. CITALOPRAM [Concomitant]
  28. PROAIR HFA [Concomitant]
  29. TRAZODONE [Concomitant]
  30. PREDNISONE [Concomitant]
  31. AMRIX [Concomitant]
  32. ASCENSIA [Concomitant]
  33. LIPITOR [Concomitant]
  34. IBUPROFEN [Concomitant]
  35. CEPHALEXIN [Concomitant]
  36. FLUOXETINE [Concomitant]
  37. ADVAIR DISKUS 100/50 [Concomitant]
  38. NITROGLYCERIN [Concomitant]
  39. TORADOL [Concomitant]

REACTIONS (27)
  - AGITATION [None]
  - ANAEMIA [None]
  - ANHEDONIA [None]
  - ANXIETY [None]
  - APHASIA [None]
  - ASTHENIA [None]
  - ATRIAL FIBRILLATION [None]
  - ATRIAL FLUTTER [None]
  - BLINDNESS [None]
  - CARDIOMEGALY [None]
  - CONFUSIONAL STATE [None]
  - DEPRESSION [None]
  - DYSPNOEA [None]
  - ECONOMIC PROBLEM [None]
  - EMOTIONAL DISORDER [None]
  - FACIAL PALSY [None]
  - FLAT AFFECT [None]
  - HEART RATE IRREGULAR [None]
  - HYPOXIA [None]
  - INJURY [None]
  - MENTAL DISORDER [None]
  - PAIN [None]
  - RENAL FAILURE [None]
  - SPEECH DISORDER [None]
  - THERAPEUTIC AGENT TOXICITY [None]
  - URINE OUTPUT DECREASED [None]
  - WHEEZING [None]
